FAERS Safety Report 7308100-3 (Version None)
Quarter: 2011Q1

REPORT INFORMATION
  Report Type: 
  Country: None (occurrence: None)
  Receive Date: 20110210
  Receipt Date: 20110203
  Transmission Date: 20110831
  Serious: Yes (Death)
  Sender: FDA-Public Use
  Company Number: JP1-P-013677

PATIENT
  Age: 40 Year
  Sex: Female

DRUGS (3)
  1. XYREM [Suspect]
     Indication: CATAPLEXY
     Dosage: 4.5 GM (2.25 GM, 2 IN 1 D), ORAL; ORAL; 9GM (4.5 GM, 2 IN 1 D), ORAL
     Route: 048
     Dates: start: 20100601
  2. XYREM [Suspect]
     Indication: CATAPLEXY
     Dosage: 4.5 GM (2.25 GM, 2 IN 1 D), ORAL; ORAL; 9GM (4.5 GM, 2 IN 1 D), ORAL
     Route: 048
     Dates: start: 20100201, end: 20100101
  3. XYREM [Suspect]
     Indication: CATAPLEXY
     Dosage: 4.5 GM (2.25 GM, 2 IN 1 D), ORAL; ORAL; 9GM (4.5 GM, 2 IN 1 D), ORAL
     Route: 048
     Dates: start: 20100101, end: 20100101

REACTIONS (5)
  - STOMATITIS [None]
  - BALANCE DISORDER [None]
  - INSOMNIA [None]
  - ABDOMINAL DISCOMFORT [None]
  - DIZZINESS [None]
